FAERS Safety Report 5271434-0 (Version None)
Quarter: 2007Q1

REPORT INFORMATION
  Report Type: 
  Country: None (occurrence: None)
  Receive Date: 20061214
  Receipt Date: 20060810
  Transmission Date: 20070707
  Serious: Yes (Hospitalization, Other)
  Sender: FDA-Public Use
  Company Number: 2005062465

PATIENT
  Age: 55 Year
  Sex: Male
  Weight: 96.1626 kg

DRUGS (1)
  1. BEXTRA [Suspect]
     Indication: OSTEOARTHRITIS
     Dosage: 20 MG (20 MG,1 IN 1 D)
     Dates: start: 20040902, end: 20050208

REACTIONS (1)
  - MYOCARDIAL INFARCTION [None]
